FAERS Safety Report 13047745 (Version 1)
Quarter: 2016Q4

REPORT INFORMATION
  Report Type: Spontaneous
  Country: US (occurrence: US)
  Receive Date: 20161220
  Receipt Date: 20161220
  Transmission Date: 20170207
  Serious: Yes (Other)
  Sender: FDA-Public Use
  Company Number: US-LUNDBECK-DKLU2024007

PATIENT
  Sex: Female

DRUGS (1)
  1. NORTHERA [Suspect]
     Active Substance: DROXIDOPA
     Indication: PRODUCT USED FOR UNKNOWN INDICATION
     Dosage: SCHEDULE A
     Route: 065

REACTIONS (9)
  - Cachexia [Unknown]
  - Diarrhoea [Unknown]
  - Jaundice [Unknown]
  - Oedema peripheral [Unknown]
  - Asthenia [Unknown]
  - Dyspnoea [Unknown]
  - Malnutrition [Unknown]
  - Food intolerance [Unknown]
  - Toxicity to various agents [Unknown]
